FAERS Safety Report 10082898 (Version 1)
Quarter: 2014Q2

REPORT INFORMATION
  Report Type: Spontaneous
  Country: CA (occurrence: CA)
  Receive Date: 20140417
  Receipt Date: 20140417
  Transmission Date: 20141212
  Serious: Yes (Other)
  Sender: FDA-Public Use
  Company Number: CA-AMGEN INC.-CANSP2014027466

PATIENT
  Age: 5 Year
  Sex: Female

DRUGS (3)
  1. ENBREL [Suspect]
     Indication: JUVENILE IDIOPATHIC ARTHRITIS
     Dosage: 15 MG, QWK
     Route: 058
     Dates: start: 20140329, end: 20140412
  2. FOLIC ACID [Concomitant]
     Dosage: 1 MG, QD
     Route: 065
  3. METHOTREXATE [Concomitant]
     Dosage: 12.5 MG, QWK
     Route: 065

REACTIONS (1)
  - Cystitis [Not Recovered/Not Resolved]
